FAERS Safety Report 6793256-1 (Version None)
Quarter: 2010Q2

REPORT INFORMATION
  Report Type: 
  Country: None (occurrence: None)
  Receive Date: 20100624
  Receipt Date: 20091027
  Transmission Date: 20101027
  Serious: Yes (Life-Threatening, Other)
  Sender: FDA-Public Use
  Company Number: US-MYLANLABS-2009S1017436

PATIENT
  Age: 47 Year
  Sex: Male
  Weight: 81.65 kg

DRUGS (10)
  1. CLOZAPINE [Suspect]
     Indication: SCHIZOPHRENIA, PARANOID TYPE
     Route: 048
     Dates: end: 20091001
  2. CLOZAPINE [Suspect]
     Route: 048
     Dates: end: 20091001
  3. RISPERDAL [Concomitant]
     Route: 048
  4. VISTARIL [Concomitant]
     Route: 048
  5. DEPAKOTE [Concomitant]
     Route: 048
  6. COGENTIN [Concomitant]
     Route: 048
  7. SYNTHROID [Concomitant]
     Route: 048
  8. NAVANE [Concomitant]
  9. RISPERDAL CONSTA [Concomitant]
  10. LORAZEPAM [Concomitant]

REACTIONS (2)
  - GRANULOCYTOPENIA [None]
  - LEUKOPENIA [None]
